FAERS Safety Report 24250615 (Version 1)
Quarter: 2024Q3

REPORT INFORMATION
  Report Type: Spontaneous
  Country: US (occurrence: None)
  Receive Date: 20240826
  Receipt Date: 20240826
  Transmission Date: 20241016
  Serious: Yes (Hospitalization)
  Sender: Public
  Company Number: None

PATIENT
  Age: 68 Year
  Sex: Male

DRUGS (1)
  1. LENALIDOMIDE [Suspect]
     Active Substance: LENALIDOMIDE
     Indication: Plasmacytoma
     Dosage: OTHER FREQUENCY : QD FOR 21 DAYS THEN 7 DAYS OFF;?

REACTIONS (4)
  - Dehydration [None]
  - Urinary tract infection [None]
  - Product prescribing issue [None]
  - Product dose omission in error [None]

NARRATIVE: CASE EVENT DATE: 20240817
